FAERS Safety Report 8483638 (Version 5)
Quarter: 2013Q1

REPORT INFORMATION
  Report Type: Report from Study
  Country: US (occurrence: US)
  Receive Date: 20120329
  Receipt Date: 20130326
  Transmission Date: 20140127
  Serious: Yes (Hospitalization)
  Sender: FDA-Public Use
  Company Number: US-ROCHE-1052118

PATIENT
  Age: 57 Year
  Sex: Female

DRUGS (6)
  1. PEG-INTERFERON ALFA 2A [Suspect]
     Indication: CHRONIC HEPATITIS C
     Route: 058
     Dates: start: 20110705, end: 20120208
  2. RIBAVIRIN [Suspect]
     Indication: CHRONIC HEPATITIS C
     Route: 048
     Dates: start: 20110705, end: 20120208
  3. FLUTICASONE PROPIONATE [Concomitant]
     Indication: HYPERSENSITIVITY
     Dosage: 2 SPRAYS IN EACH NOSTRIL ( G50 MICROGRMA AS REQUIRED)
     Route: 065
     Dates: start: 20110729
  4. KLIOGEST N [Concomitant]
     Indication: NIGHT SWEATS
     Route: 065
     Dates: start: 201105
  5. ESCITALOPRAM OXALATE [Concomitant]
     Indication: DEPRESSION
     Route: 048
     Dates: start: 20111012
  6. PHENERGAN [Concomitant]
     Indication: NAUSEA
     Route: 054
     Dates: start: 20111012, end: 20111014

REACTIONS (4)
  - Muscular weakness [Unknown]
  - Arthralgia [Unknown]
  - Malnutrition [Recovered/Resolved]
  - Dehydration [Recovered/Resolved]
